FAERS Safety Report 9577233 (Version 1)
Quarter: 2013Q4

REPORT INFORMATION
  Report Type: Spontaneous
  Country: US (occurrence: US)
  Receive Date: 20131001
  Receipt Date: 20131001
  Transmission Date: 20140711
  Serious: Yes (Death)
  Sender: FDA-Public Use
  Company Number: CHPA2013US014893

PATIENT
  Age: 64 Year
  Sex: Male

DRUGS (2)
  1. PERDIEM OVERNIGHT RELIEF PILLS [Suspect]
     Indication: FUNCTIONAL GASTROINTESTINAL DISORDER
     Dosage: UNK, QD
     Route: 048
     Dates: end: 199707
  2. PERDIEM OVERNIGHT RELIEF PILLS [Suspect]
     Indication: OFF LABEL USE

REACTIONS (1)
  - Death [Fatal]
